FAERS Safety Report 10239945 (Version 1)
Quarter: 2014Q2

REPORT INFORMATION
  Report Type: Spontaneous
  Country: US (occurrence: US)
  Receive Date: 20140616
  Receipt Date: 20140616
  Transmission Date: 20141212
  Serious: Yes (Hospitalization)
  Sender: FDA-Public Use
  Company Number: US-TEVA-487773USA

PATIENT
  Age: 4 Year
  Sex: Male

DRUGS (14)
  1. CARBOPLATIN [Suspect]
     Indication: MEDULLOBLASTOMA
     Dosage: INDUCTION THERAPY; THEN RECEIVED DAILY
     Route: 065
  2. CARBOPLATIN [Suspect]
     Indication: MEDULLOBLASTOMA
     Dosage: DAILY
     Route: 065
  3. CISPLATIN [Suspect]
     Indication: MEDULLOBLASTOMA
     Route: 065
  4. CETUXIMAB [Suspect]
     Indication: MEDULLOBLASTOMA
     Dosage: 250MG/M2/D ON D7, 14, 21
     Route: 065
  5. VINCRISTINE [Concomitant]
     Indication: MEDULLOBLASTOMA
     Route: 065
  6. CYCLOPHOSPHAMIDE [Concomitant]
     Indication: MEDULLOBLASTOMA
     Dosage: 1000MG/M2/D; D1 AND D2
     Route: 065
  7. CYCLOPHOSPHAMIDE [Concomitant]
     Indication: MEDULLOBLASTOMA
     Dosage: MAINTENANCE CHEMOTHERAPY; THEN RECEIVED 1000MG/M2/D
     Route: 065
  8. GABAPENTIN [Concomitant]
     Indication: NEURALGIA
     Route: 065
  9. MEGESTROL [Concomitant]
     Route: 065
  10. PENTAMIDINE [Concomitant]
     Indication: ANTIFUNGAL PROPHYLAXIS
     Dosage: EVERY 3 WEEKS
     Route: 065
  11. ONDANSETRON [Concomitant]
     Indication: NAUSEA
     Dosage: AS NEEDED
     Route: 065
  12. LORAZEPAM [Concomitant]
     Indication: NAUSEA
     Dosage: AS NEEDED
     Route: 065
  13. VINBLASTINE [Concomitant]
     Indication: MEDULLOBLASTOMA
     Dosage: 4MG/M2/D; D1 AND D7
     Route: 065
  14. ETOPOSIDE [Concomitant]
     Indication: MEDULLOBLASTOMA
     Route: 065

REACTIONS (5)
  - Hypomagnesaemia [Recovering/Resolving]
  - Hypocalcaemia [Recovering/Resolving]
  - Tetany [Recovering/Resolving]
  - Folliculitis [Unknown]
  - Hypokalaemia [Recovering/Resolving]
